FAERS Safety Report 16364531 (Version 1)
Quarter: 2019Q2

REPORT INFORMATION
  Report Type: Spontaneous
  Country: IL (occurrence: IL)
  Receive Date: 20190528
  Receipt Date: 20190528
  Transmission Date: 20190711
  Serious: Yes (Disabling)
  Sender: FDA-Public Use
  Company Number: IL-ASTRAZENECA-2019SE76743

PATIENT
  Age: 55 Year
  Sex: Female

DRUGS (1)
  1. TAGRISSO [Suspect]
     Active Substance: OSIMERTINIB
     Indication: LUNG ADENOCARCINOMA STAGE IV
     Dosage: 80 MG IN 1L
     Route: 048

REACTIONS (1)
  - Peroneal nerve palsy [Not Recovered/Not Resolved]
